FAERS Safety Report 13938543 (Version 1)
Quarter: 2017Q3

REPORT INFORMATION
  Report Type: Spontaneous
  Country: US (occurrence: US)
  Receive Date: 20170905
  Receipt Date: 20170905
  Transmission Date: 20171127
  Serious: Yes (Death)
  Sender: FDA-Public Use
  Company Number: None

PATIENT
  Age: 92 Year
  Sex: Male
  Weight: 72.1 kg

DRUGS (5)
  1. OMPERAZOLE [Concomitant]
     Active Substance: OMEPRAZOLE
  2. ASPIRIN. [Suspect]
     Active Substance: ASPIRIN
     Indication: CORONARY ARTERY DISEASE
     Route: 048
  3. ALLOPURINOL. [Concomitant]
     Active Substance: ALLOPURINOL
  4. AMLODIPINE [Concomitant]
     Active Substance: AMLODIPINE BESYLATE
  5. METOPROLOL TARTRATE. [Concomitant]
     Active Substance: METOPROLOL TARTRATE

REACTIONS (12)
  - Respiratory rate decreased [None]
  - Gastrointestinal haemorrhage [None]
  - Rectal haemorrhage [None]
  - Lactic acidosis [None]
  - Haemoglobin decreased [None]
  - Hypotension [None]
  - Duodenal ulcer [None]
  - Unresponsive to stimuli [None]
  - Atrial fibrillation [None]
  - Leukocytosis [None]
  - Bradycardia [None]
  - Cardiac arrest [None]

NARRATIVE: CASE EVENT DATE: 20170604
